FAERS Safety Report 11700821 (Version 1)
Quarter: 2015Q4

REPORT INFORMATION
  Report Type: Spontaneous
  Country: US (occurrence: None)
  Receive Date: 20151104
  Receipt Date: 20151104
  Transmission Date: 20160304
  Serious: Yes (Other)
  Sender: FDA-Public Use
  Company Number: None

PATIENT
  Age: 49 Year
  Sex: Female
  Weight: 91.17 kg

DRUGS (4)
  1. INVOKANA [Suspect]
     Active Substance: CANAGLIFLOZIN
     Indication: DIABETES MELLITUS INADEQUATE CONTROL
     Route: 048
  2. VICTOZA [Concomitant]
     Active Substance: LIRAGLUTIDE
  3. METFORMIN [Concomitant]
     Active Substance: METFORMIN HYDROCHLORIDE
  4. GLIPIZIDE. [Concomitant]
     Active Substance: GLIPIZIDE

REACTIONS (1)
  - Renal mass [None]

NARRATIVE: CASE EVENT DATE: 20151027
